FAERS Safety Report 11957376 (Version 4)
Quarter: 2016Q3

REPORT INFORMATION
  Report Type: Report from Study
  Country: BE (occurrence: BE)
  Receive Date: 20160126
  Receipt Date: 20160806
  Transmission Date: 20161109
  Serious: Yes (Hospitalization)
  Sender: FDA-Public Use
  Company Number: BE-ABBVIE-15P-013-1471513-00

PATIENT
  Sex: Female

DRUGS (4)
  1. DUODOPA [Suspect]
     Active Substance: CARBIDOPA\LEVODOPA
     Dosage: AM=2.5ML; CD=3.5ML/HR DURING 16HRS ; ED=2ML
     Route: 050
     Dates: start: 20121206, end: 20150921
  2. DUODOPA [Suspect]
     Active Substance: CARBIDOPA\LEVODOPA
     Dosage: DOSES CONTINUOUSLY MONITORED AND ADAPTED
     Route: 050
     Dates: start: 20091215, end: 20121206
  3. DUODOPA [Suspect]
     Active Substance: CARBIDOPA\LEVODOPA
     Dosage: AM=2.5ML; CD=3.5ML/HR DURING 16HRS; ED=1.8ML
     Route: 050
     Dates: start: 20150921
  4. DUODOPA [Suspect]
     Active Substance: CARBIDOPA\LEVODOPA
     Indication: PARKINSON^S DISEASE
     Dosage: UNKNOWN
     Route: 050
     Dates: start: 20081103, end: 20091215

REACTIONS (7)
  - Fistula discharge [Not Recovered/Not Resolved]
  - Cachexia [Unknown]
  - Asthenia [Unknown]
  - Catheter site infection [Unknown]
  - Stoma site extravasation [Not Recovered/Not Resolved]
  - Dyskinesia [Recovering/Resolving]
  - Stoma site erythema [Unknown]
